FAERS Safety Report 13423375 (Version 1)
Quarter: 2017Q2

REPORT INFORMATION
  Report Type: Spontaneous
  Country: FR (occurrence: FR)
  Receive Date: 20170410
  Receipt Date: 20170410
  Transmission Date: 20170830
  Serious: Yes (Hospitalization)
  Sender: FDA-Public Use
  Company Number: FR-PFIZER INC-2017145622

PATIENT
  Age: 47 Year
  Sex: Female

DRUGS (13)
  1. PARACETAMOL [Concomitant]
     Active Substance: ACETAMINOPHEN
     Indication: PAIN
     Dosage: 1 G IF PAIN (4 DF DAILY MAXIMUM)
  2. MOVICOL [Concomitant]
     Active Substance: POLYETHYLENE GLYCOL 3350\POTASSIUM CHLORIDE\SODIUM BICARBONATE\SODIUM CHLORIDE
     Dosage: UNK UNK, AS NEEDED
  3. OXALIPLATIN. [Suspect]
     Active Substance: OXALIPLATIN
     Indication: NATURAL KILLER-CELL LYMPHOBLASTIC LYMPHOMA
     Dosage: 130 MG/M2 (240 MG), SINGLE
     Route: 042
     Dates: start: 20170126, end: 20170126
  4. SERTRALINE [Concomitant]
     Active Substance: SERTRALINE HYDROCHLORIDE
     Dosage: 100 MG, 1X/DAY (2 TABLETS OF 50 MG DAILY)
     Route: 048
  5. VALACICLOVIR [Concomitant]
     Active Substance: VALACYCLOVIR HYDROCHLORIDE
     Dosage: 500 MG, 2X/DAY (1 TABLET TWICE DAILY)
     Route: 048
  6. KIDROLASE [Suspect]
     Active Substance: ASPARAGINASE
     Indication: NATURAL KILLER-CELL LYMPHOBLASTIC LYMPHOMA
     Dosage: 10000 IU (6000 U/M2, 10 000 IU AS 8 INFUSIONS WITH EACH INFUSION SEPARATED BY 48 HR), ALTERNATE DAY
     Route: 041
     Dates: start: 20170127, end: 20170206
  7. METHOTREXATE SODIUM. [Suspect]
     Active Substance: METHOTREXATE SODIUM
     Indication: NATURAL KILLER-CELL LYMPHOBLASTIC LYMPHOMA
     Dosage: 3000 MG/M2 (CORRESPONDING TO 5600 MG), SINGLE
     Route: 041
     Dates: start: 20170125, end: 20170125
  8. RACECADOTRIL [Concomitant]
     Active Substance: RACECADOTRIL
     Dosage: UNK UNK, AS NEEDED
  9. FILGRASTIM [Concomitant]
     Active Substance: FILGRASTIM
     Dosage: 48 MILLION IU, ONE SYRINGE EVERY 24 HOURS.
     Dates: start: 20170130, end: 20170201
  10. GEMCITABINE HYDROCHLORIDE. [Suspect]
     Active Substance: GEMCITABINE HYDROCHLORIDE
     Indication: NATURAL KILLER-CELL LYMPHOBLASTIC LYMPHOMA
     Dosage: 1000 MG/M2 (1900 MG), SINGLE
     Route: 041
     Dates: start: 20170126, end: 20170126
  11. DEXAMETHASONE MYLAN [Suspect]
     Active Substance: DEXAMETHASONE
     Indication: NATURAL KILLER-CELL LYMPHOBLASTIC LYMPHOMA
     Dosage: 40 MG, 1X/DAY
     Route: 042
     Dates: start: 20170125, end: 20170128
  12. ROVAMYCINE /00074401/ [Concomitant]
     Active Substance: SPIRAMYCIN
     Dosage: 1.5 MILLION IU, 2X/DAY (1 TABLET TWICE DAILY)
     Route: 048
  13. ENALAPRIL MALEATE. [Concomitant]
     Active Substance: ENALAPRIL MALEATE
     Dosage: 20 MG, 1X/DAY
     Route: 048

REACTIONS (1)
  - Pancreatitis [Recovering/Resolving]

NARRATIVE: CASE EVENT DATE: 20170206
